FAERS Safety Report 16973141 (Version 5)
Quarter: 2021Q1

REPORT INFORMATION
  Report Type: Other
  Country: US (occurrence: US)
  Receive Date: 20191030
  Receipt Date: 20210315
  Transmission Date: 20210419
  Serious: Yes (Other)
  Sender: FDA-Public Use
  Company Number: US-ROCHE-2162378

PATIENT
  Sex: Male

DRUGS (33)
  1. ESBRIET [Suspect]
     Active Substance: PIRFENIDONE
     Indication: CYSTIC FIBROSIS
     Dosage: 3 CAPSULES 3 TIMES DAILY WITH MEALS
     Route: 048
     Dates: start: 20180314
  2. CLOBETASOL [Concomitant]
     Active Substance: CLOBETASOL
  3. LIOTHYRONINE SODIUM. [Concomitant]
     Active Substance: LIOTHYRONINE SODIUM
  4. MUPIROCIN. [Concomitant]
     Active Substance: MUPIROCIN
  5. MIRTAZAPINE. [Concomitant]
     Active Substance: MIRTAZAPINE
  6. POTASSIUM [Concomitant]
     Active Substance: POTASSIUM
  7. BELSOMRA [Concomitant]
     Active Substance: SUVOREXANT
  8. TERAZOSIN [Concomitant]
     Active Substance: TERAZOSIN HYDROCHLORIDE
  9. ESBRIET [Suspect]
     Active Substance: PIRFENIDONE
     Indication: IDIOPATHIC PULMONARY FIBROSIS
     Route: 048
  10. ESBRIET [Suspect]
     Active Substance: PIRFENIDONE
     Indication: PULMONARY FIBROSIS
  11. GABAPENTIN. [Concomitant]
     Active Substance: GABAPENTIN
  12. VASCEPA [Concomitant]
     Active Substance: ICOSAPENT ETHYL
  13. HUMULIN R [Concomitant]
     Active Substance: INSULIN HUMAN
  14. ISOSORBIDE. [Concomitant]
     Active Substance: ISOSORBIDE
  15. NIACIN. [Concomitant]
     Active Substance: NIACIN
  16. POTASSIUM CHLORIDE. [Concomitant]
     Active Substance: POTASSIUM CHLORIDE
  17. ROSUVASTATIN. [Concomitant]
     Active Substance: ROSUVASTATIN
  18. TORSEMIDE. [Concomitant]
     Active Substance: TORSEMIDE
  19. ESBRIET [Suspect]
     Active Substance: PIRFENIDONE
     Indication: COUGH
  20. DICLOFENAC [Concomitant]
     Active Substance: DICLOFENAC
  21. FENOFIBRATE. [Concomitant]
     Active Substance: FENOFIBRATE
  22. CLOPIDOGREL [Concomitant]
     Active Substance: CLOPIDOGREL BISULFATE
  23. LORAZEPAM. [Concomitant]
     Active Substance: LORAZEPAM
  24. ALBUTEROL SULFATE. [Concomitant]
     Active Substance: ALBUTEROL SULFATE
  25. NITROGLYCERIN. [Concomitant]
     Active Substance: NITROGLYCERIN
  26. ESBRIET [Suspect]
     Active Substance: PIRFENIDONE
     Indication: GASTROOESOPHAGEAL REFLUX DISEASE
     Dosage: TAKE 1 CAPSULE BY MOUTH 3 TIMES A DAY
     Route: 048
  27. ESBRIET [Suspect]
     Active Substance: PIRFENIDONE
     Indication: PNEUMONITIS
  28. CEFUROXIME. [Concomitant]
     Active Substance: CEFUROXIME
  29. METOPROLOL SUCCINATE. [Concomitant]
     Active Substance: METOPROLOL SUCCINATE
  30. ESBRIET [Suspect]
     Active Substance: PIRFENIDONE
     Indication: INTERSTITIAL LUNG DISEASE
  31. LEVOTHYROXINE. [Concomitant]
     Active Substance: LEVOTHYROXINE
  32. MELATONIN [Concomitant]
     Active Substance: MELATONIN
  33. METOLAZONE. [Concomitant]
     Active Substance: METOLAZONE

REACTIONS (9)
  - Dyspnoea [Unknown]
  - Back disorder [Unknown]
  - Spinal stenosis [Unknown]
  - Arthropathy [Unknown]
  - Treatment noncompliance [Unknown]
  - Ill-defined disorder [Unknown]
  - Diabetes mellitus [Unknown]
  - Malaise [Unknown]
  - Tremor [Not Recovered/Not Resolved]
